FAERS Safety Report 21170290 (Version 1)
Quarter: 2022Q3

REPORT INFORMATION
  Report Type: Spontaneous
  Country: US (occurrence: US)
  Receive Date: 20220804
  Receipt Date: 20220804
  Transmission Date: 20221026
  Serious: No
  Sender: FDA-Public Use
  Company Number: US-JNJFOC-20220805588

PATIENT
  Sex: Female

DRUGS (2)
  1. TYLENOL 8HR [Suspect]
     Active Substance: ACETAMINOPHEN
     Indication: Myalgia
     Dosage: SHE IS TAKING ONE CAPLET SHE USUALLY USE IT TWICE A DAY
     Route: 065
  2. TYLENOL 8HR [Suspect]
     Active Substance: ACETAMINOPHEN
     Indication: Back pain

REACTIONS (2)
  - Incorrect dose administered [Unknown]
  - Inappropriate schedule of product administration [Unknown]
